FAERS Safety Report 7956327-X (Version None)
Quarter: 2011Q4

REPORT INFORMATION
  Report Type: 
  Country: None (occurrence: None)
  Receive Date: 20111125
  Receipt Date: 20111111
  Transmission Date: 20120403
  Serious: Yes (Hospitalization)
  Sender: FDA-Public Use
  Company Number: 2011PROUSA00780

PATIENT
  Age: 87 Year
  Sex: Male

DRUGS (2)
  1. PROVENGE [Suspect]
     Indication: PROSTATE CANCER METASTATIC
     Dosage: 250 ML, SINGLE, INTRAVENOUS
     Route: 058
     Dates: start: 20111020, end: 20111020
  2. PROVENGE [Suspect]

REACTIONS (2)
  - THROMBOSIS [None]
  - LIMB INJURY [None]
